FAERS Safety Report 24621701 (Version 3)
Quarter: 2024Q4

REPORT INFORMATION
  Report Type: Spontaneous
  Country: US (occurrence: US)
  Receive Date: 20241114
  Receipt Date: 20241226
  Transmission Date: 20250115
  Serious: No
  Sender: SANOFI AVENTIS
  Company Number: US-SA-2024SA320989

PATIENT
  Sex: Female

DRUGS (2)
  1. DUPIXENT [Suspect]
     Active Substance: DUPILUMAB
     Indication: Nasal polyps
     Dosage: 300 MG, QOW
     Route: 058
     Dates: start: 20241001
  2. ZYRTEC [Concomitant]
     Active Substance: CETIRIZINE HYDROCHLORIDE
     Dosage: UNK

REACTIONS (9)
  - Pruritus [Recovered/Resolved]
  - Ocular hyperaemia [Recovered/Resolved]
  - Swelling of eyelid [Recovered/Resolved]
  - Eyelids pruritus [Recovered/Resolved]
  - Vision blurred [Recovered/Resolved]
  - Sinusitis [Unknown]
  - Injection site reaction [Recovered/Resolved]
  - Injection site pain [Unknown]
  - Eye pruritus [Recovered/Resolved]

NARRATIVE: CASE EVENT DATE: 20240101
